FAERS Safety Report 17758978 (Version 1)
Quarter: 2020Q2

REPORT INFORMATION
  Report Type: Spontaneous
  Country: FR (occurrence: FR)
  Receive Date: 20200508
  Receipt Date: 20200508
  Transmission Date: 20200714
  Serious: Yes (Other)
  Sender: FDA-Public Use
  Company Number: FR-TEVA-2020-FR-1233873

PATIENT
  Age: 71 Year
  Sex: Female

DRUGS (2)
  1. METHOTREXATE. [Suspect]
     Active Substance: METHOTREXATE
     Indication: FOREIGN BODY REACTION
     Route: 058
  2. ARTECOLL [DEVICE] [Suspect]
     Active Substance: DEVICE
     Dosage: INTRA-LABIAL INJECTION
     Route: 050

REACTIONS (2)
  - Hepatocellular injury [Recovered/Resolved]
  - Foreign body reaction [Recovered/Resolved]
